FAERS Safety Report 4748621-0 (Version None)
Quarter: 2005Q3

REPORT INFORMATION
  Report Type: 
  Country: None (occurrence: None)
  Receive Date: 20050819
  Receipt Date: 20050809
  Transmission Date: 20060218
  Serious: Yes (Hospitalization)
  Sender: FDA-Public Use
  Company Number: PHBS2005JP11736

PATIENT

DRUGS (1)
  1. ESIDRI [Suspect]
     Route: 048

REACTIONS (2)
  - DEPRESSIVE SYMPTOM [None]
  - SUBARACHNOID HAEMORRHAGE [None]
